FAERS Safety Report 5025999-4 (Version None)
Quarter: 2006Q2

REPORT INFORMATION
  Report Type: 
  Country: None (occurrence: None)
  Receive Date: 20060427
  Receipt Date: 20060125
  Transmission Date: 20061013
  Serious: Yes (Other)
  Sender: FDA-Public Use
  Company Number: 2006013155

PATIENT
  Age: 18 Month
  Sex: Male

DRUGS (1)
  1. ZITHROMAX [Suspect]
     Indication: ILL-DEFINED DISORDER
     Dates: start: 20041201

REACTIONS (1)
  - DEAFNESS [None]
